FAERS Safety Report 8905811 (Version 1)
Quarter: 2012Q4

REPORT INFORMATION
  Report Type: 
  Country: US (occurrence: US)
  Receive Date: 20121111
  Receipt Date: 20121111
  Transmission Date: 20130627
  Serious: Yes (Other)
  Sender: FDA-Public Use
  Company Number: PHEH2012US021980

PATIENT
  Sex: Female

DRUGS (1)
  1. SANDOSTATIN [Suspect]

REACTIONS (1)
  - Lyme disease [Unknown]
